FAERS Safety Report 10535191 (Version 2)
Quarter: 2014Q4

REPORT INFORMATION
  Report Type: Spontaneous
  Country: JP (occurrence: JP)
  Receive Date: 20141022
  Receipt Date: 20141029
  Transmission Date: 20150529
  Serious: Yes (Hospitalization)
  Sender: FDA-Public Use
  Company Number: JP-PFIZER INC-2014283967

PATIENT
  Age: 55 Year
  Sex: Male
  Weight: 84.6 kg

DRUGS (18)
  1. LYRICA [Suspect]
     Active Substance: PREGABALIN
     Dosage: 2X/DAY (50 MG AFTER BREAKFAST AND 75 MG AFTER DINNER)
     Route: 048
     Dates: start: 20140729, end: 20140807
  2. TERNELIN [Suspect]
     Active Substance: TIZANIDINE
     Dosage: 1 MG, 3X/DAY
     Route: 048
     Dates: start: 20140626, end: 20140627
  3. TERNELIN [Suspect]
     Active Substance: TIZANIDINE
     Dosage: 1 MG, 3X/DAY
     Route: 048
     Dates: start: 20140726, end: 20140730
  4. NEXIUM [Concomitant]
     Active Substance: ESOMEPRAZOLE MAGNESIUM
     Dosage: UNK
     Route: 048
     Dates: start: 20140515, end: 20140609
  5. LYRICA [Suspect]
     Active Substance: PREGABALIN
     Indication: HYPOAESTHESIA
     Dosage: 75 MG, 2X/DAY
     Route: 048
     Dates: start: 20140621, end: 20140626
  6. LYRICA [Suspect]
     Active Substance: PREGABALIN
     Dosage: 100 MG, 2X/DAY
     Route: 048
     Dates: start: 20140825, end: 20140920
  7. MAINTATE [Concomitant]
     Active Substance: BISOPROLOL FUMARATE
     Dosage: UNK
     Dates: start: 20140705
  8. MAINTATE [Concomitant]
     Active Substance: BISOPROLOL FUMARATE
     Dosage: UNK
     Route: 048
     Dates: end: 20140704
  9. LYRICA [Suspect]
     Active Substance: PREGABALIN
     Dosage: 75 MG, 2X/DAY
     Route: 048
     Dates: start: 20140808, end: 20140824
  10. METHYCOBAL [Concomitant]
     Active Substance: METHYLCOBALAMIN
     Dosage: UNK
     Route: 048
  11. MAGMITT [Concomitant]
     Active Substance: MAGNESIUM OXIDE
     Dosage: UNK
     Route: 048
     Dates: start: 20140513
  12. LYRICA [Suspect]
     Active Substance: PREGABALIN
     Indication: PAIN
     Dosage: 75 MG, 2X/DAY
     Route: 048
     Dates: start: 20140425, end: 20140609
  13. MYSLEE [Concomitant]
     Active Substance: ZOLPIDEM TARTRATE
     Dosage: UNK
     Route: 048
     Dates: start: 20140404, end: 20140609
  14. ADALAT CC [Concomitant]
     Active Substance: NIFEDIPINE
     Dosage: UNK
     Route: 048
     Dates: end: 20140201
  15. AMLODIPINE [Concomitant]
     Active Substance: AMLODIPINE BESYLATE
     Route: 048
  16. LYRICA [Suspect]
     Active Substance: PREGABALIN
     Dosage: 50 MG, 2X/DAY
     Route: 048
     Dates: start: 20140726, end: 20140728
  17. TERNELIN [Suspect]
     Active Substance: TIZANIDINE
     Dosage: 1 MG, 3X/DAY
     Route: 048
     Dates: start: 20140410, end: 20140609
  18. TERNELIN [Suspect]
     Active Substance: TIZANIDINE
     Dosage: 2 MG, 3X/DAY
     Route: 048
     Dates: start: 20140731, end: 20140920

REACTIONS (2)
  - Liver disorder [Recovered/Resolved]
  - Liver disorder [Recovered/Resolved]

NARRATIVE: CASE EVENT DATE: 20140609
